FAERS Safety Report 7470920-2 (Version None)
Quarter: 2011Q2

REPORT INFORMATION
  Report Type: 
  Country: None (occurrence: None)
  Receive Date: 20110506
  Receipt Date: 20110506
  Transmission Date: 20111010
  Serious: Yes (Other)
  Sender: FDA-Public Use
  Company Number: None

PATIENT
  Sex: Female
  Weight: 42.63 kg

DRUGS (1)
  1. SIROLIMUS [Suspect]
     Indication: LIVER TRANSPLANT
     Dosage: 1MG TABS DAILY ORAL
     Route: 048
     Dates: start: 20050526, end: 20080707

REACTIONS (2)
  - PULMONARY EMBOLISM [None]
  - OEDEMA [None]
